FAERS Safety Report 4719524-2 (Version None)
Quarter: 2005Q3

REPORT INFORMATION
  Report Type: 
  Country: None (occurrence: None)
  Receive Date: 20050719
  Receipt Date: 20050719
  Transmission Date: 20060218
  Serious: Yes (Hospitalization)
  Sender: FDA-Public Use
  Company Number: None

PATIENT
  Age: 53 Year
  Sex: Male
  Weight: 158.3054 kg

DRUGS (20)
  1. OXYCODONE 5/APAP 500 [Suspect]
     Indication: DIABETES MELLITUS
     Dosage: 2 PO Q4H
     Route: 048
     Dates: start: 20030206, end: 20050418
  2. RANITIDINE [Suspect]
     Indication: GASTROOESOPHAGEAL REFLUX DISEASE
     Dosage: 150MG PO BID
     Route: 048
     Dates: start: 20020909, end: 20050718
  3. ALLOPURINOL [Concomitant]
  4. ATENOLOL [Concomitant]
  5. BRIMONIDINE TARTRATE [Concomitant]
  6. CALCIUM CARBONATE [Concomitant]
  7. CEPHALEXIN [Concomitant]
  8. DARBEPOETIN ALFA [Concomitant]
  9. DILTIAZEM [Concomitant]
  10. DOCUSATE NA [Concomitant]
  11. DORZOLAMIDE 2/TIMOLOL [Concomitant]
  12. OLANZAPINE [Concomitant]
  13. HEMORRHOIDAL RTL SUPP [Concomitant]
  14. IBUPROFEN [Concomitant]
  15. INSULIN NOVOLIN 70/30 -NPH/REG INJ [Concomitant]
  16. PROMETHAZINE HCL [Concomitant]
  17. RANITIDINE HCL [Concomitant]
  18. SIMVASTATIN [Concomitant]
  19. TRAVOPROST [Concomitant]
  20. TRAZODONE HCL [Concomitant]

REACTIONS (7)
  - BLOOD GLUCOSE INCREASED [None]
  - CONFUSIONAL STATE [None]
  - DEPRESSED LEVEL OF CONSCIOUSNESS [None]
  - HYPOGLYCAEMIA [None]
  - RENAL MASS [None]
  - RESPIRATORY DISORDER [None]
  - SOMNOLENCE [None]
